FAERS Safety Report 6528041-9 (Version None)
Quarter: 2010Q1

REPORT INFORMATION
  Report Type: 
  Country: None (occurrence: None)
  Receive Date: 20100105
  Receipt Date: 20100105
  Transmission Date: 20100710
  Serious: No
  Sender: FDA-Public Use
  Company Number: None

PATIENT
  Age: 75 Year
  Sex: Male

DRUGS (1)
  1. TRIMETHOPRIM-SULFAMETHOXAZOLE [Suspect]
     Indication: SINUSITIS
     Dosage: 1 TAB BID PO
     Route: 048
     Dates: start: 20091027, end: 20091104

REACTIONS (1)
  - RASH PRURITIC [None]
